FAERS Safety Report 6029398-8 (Version None)
Quarter: 2009Q1

REPORT INFORMATION
  Report Type: 
  Country: None (occurrence: None)
  Receive Date: 20090105
  Receipt Date: 20081218
  Transmission Date: 20090719
  Serious: Yes (Hospitalization)
  Sender: FDA-Public Use
  Company Number: 2008JP005874

PATIENT
  Sex: Male

DRUGS (1)
  1. VESICARE [Suspect]
     Dosage: 5 MG /D, ORAL
     Route: 048
     Dates: start: 20081115, end: 20080101

REACTIONS (2)
  - HENOCH-SCHONLEIN PURPURA [None]
  - PAIN IN EXTREMITY [None]
